FAERS Safety Report 10572941 (Version 1)
Quarter: 2014Q4

REPORT INFORMATION
  Report Type: Spontaneous
  Country: US (occurrence: None)
  Receive Date: 20141107
  Receipt Date: 20141107
  Transmission Date: 20150529
  Serious: No
  Sender: FDA-Public Use
  Company Number: None

PATIENT
  Age: 62 Year
  Sex: Female
  Weight: 82.56 kg

DRUGS (1)
  1. OMEPRAZOLE 40 MG KREMERS URBAN [Suspect]
     Active Substance: OMEPRAZOLE
     Indication: GASTRITIS
     Dosage: ONE PILL 40 MG ONCE DAILY TAKEN BY MOUTH
     Route: 048
     Dates: start: 20141009, end: 20141105

REACTIONS (8)
  - Fatigue [None]
  - Decreased appetite [None]
  - Vomiting [None]
  - Dizziness [None]
  - Tremor [None]
  - Nausea [None]
  - Anxiety [None]
  - Panic attack [None]

NARRATIVE: CASE EVENT DATE: 20141106
